FAERS Safety Report 7299889-0 (Version None)
Quarter: 2011Q1

REPORT INFORMATION
  Report Type: 
  Country: None (occurrence: None)
  Receive Date: 20110217
  Receipt Date: 20110208
  Transmission Date: 20110831
  Serious: Yes (Hospitalization)
  Sender: FDA-Public Use
  Company Number: US-ASTRAZENECA-2011SE07687

PATIENT
  Age: 709 Month
  Sex: Male

DRUGS (18)
  1. MECLIZINE [Concomitant]
  2. LYRICA [Concomitant]
  3. IMITREX [Suspect]
     Indication: MIGRAINE
     Route: 048
  4. PLAVIX [Concomitant]
  5. LOPRESSOR [Concomitant]
  6. LOSARTAN [Concomitant]
  7. LIPITOR [Concomitant]
  8. SERTRALINE [Suspect]
     Route: 065
  9. AMBIEN [Concomitant]
  10. DEXILANT [Concomitant]
  11. OXYCODONE [Concomitant]
  12. XANAX [Concomitant]
  13. K-DUR [Concomitant]
  14. SCOPOLAMINE [Concomitant]
  15. MS CONTIN [Concomitant]
  16. SEROQUEL [Suspect]
     Route: 048
  17. WELLBUTRIN SR [Concomitant]
  18. XANIDINE [Concomitant]

REACTIONS (6)
  - MYOCARDIAL INFARCTION [None]
  - CORONARY ARTERY BYPASS [None]
  - HEART RATE IRREGULAR [None]
  - ARTERIAL OCCLUSIVE DISEASE [None]
  - CATHETERISATION CARDIAC [None]
  - DEVICE MALFUNCTION [None]
